FAERS Safety Report 9648514 (Version 2)
Quarter: 2014Q1

REPORT INFORMATION
  Report Type: Spontaneous
  Country: US (occurrence: None)
  Receive Date: 20131024
  Receipt Date: 20140318
  Transmission Date: 20141002
  Serious: Yes (Hospitalization, Other)
  Sender: FDA-Public Use
  Company Number: CIP11002313

PATIENT
  Age: 65 Year
  Sex: Female
  Weight: 64.5 kg

DRUGS (45)
  1. ACTONEL [Suspect]
     Indication: OSTEOPOROSIS
     Dosage: 35 MG ONCE WEEKLY, ORAL
     Route: 048
     Dates: start: 200212, end: 20090508
  2. ACTONEL [Suspect]
     Indication: OSTEOPOROSIS PROPHYLAXIS
     Dosage: 35 MG ONCE WEEKLY, ORAL
     Route: 048
     Dates: start: 200212, end: 20090508
  3. ALENDRONATE [Suspect]
     Indication: OSTEOPOROSIS
     Dosage: 70 MG ONCE WEEKLY, ORAL
     Route: 048
     Dates: start: 20090508, end: 20110629
  4. ALENDRONATE [Suspect]
     Indication: OSTEOPOROSIS PROPHYLAXIS
     Dosage: 70 MG ONCE WEEKLY, ORAL
     Route: 048
     Dates: start: 20090508, end: 20110629
  5. FOSAMAX [Suspect]
     Indication: OSTEOPOROSIS
     Dosage: 70 MG ONCE WEEKLY, ORAL
     Route: 048
     Dates: start: 20090508
  6. FOSAMAX [Suspect]
     Indication: OSTEOPOROSIS PROPHYLAXIS
     Dosage: 70 MG ONCE WEEKLY, ORAL
     Route: 048
     Dates: start: 20090508
  7. PREMARIN [Concomitant]
  8. ESTRADIOL [Concomitant]
  9. PROVENTIL [Concomitant]
  10. ASMANEX [Concomitant]
  11. ADVAIR [Concomitant]
  12. PROAIR [Concomitant]
  13. SINGULAIR [Concomitant]
  14. LORATADINE (LORATADINE) (LORATADINE) [Concomitant]
  15. MAXZIDE [Concomitant]
  16. ZETIA [Concomitant]
  17. VYTORIN [Concomitant]
  18. LIPITOR [Concomitant]
  19. WELCHOL [Concomitant]
  20. LOVAZA [Concomitant]
  21. CYCLOBENZAPRINE (CYCLOBENZAPRINE) [Concomitant]
  22. ASPIRIN [Concomitant]
  23. IBUPROFEN (IBUPROFEN) [Concomitant]
  24. MELOXICAM (MELOXICAM) [Concomitant]
  25. CELEBREX (CELECOXIB) [Concomitant]
  26. NEXIUM / 01479302/ (ESOMEPRAZOLE MAGNESIUM) [Concomitant]
  27. PRILOSEC /00661201/ (OMEPRAZOLE) [Concomitant]
  28. FLUCONAZOLE (FLUCONAZOLE) [Concomitant]
  29. ACYCLOVIR /00587301/ (ACICLOVIR) [Concomitant]
  30. NITROFURANTOIN MONOHYDRATE (NITROFURANTOIN MONOHYDRATE)? [Concomitant]
  31. PYRIDIUM (PHENAZOPYRIDINE HYDROCHLORIDE) [Concomitant]
  32. CIPROFLOXACIN (CIPROFLOXACIN) [Concomitant]
  33. LEVAQUIN (LEVOFLOXACIN) [Concomitant]
  34. BIAXIN (CLARITHROMYCIN) [Concomitant]
  35. ZMAX /00944301/ (AZITHROMYCIN) [Concomitant]
  36. HISTUSSIN-HC [Concomitant]
  37. ROBITUSSIN-DAC [Concomitant]
  38. PREDNISONE (PREDNISONE) [Concomitant]
  39. ACIDOPHILUS (LACTOBACILLUS ACIDOPHILUS) [Concomitant]
  40. CENTRUM SILVER [Concomitant]
  41. GINKO BILOBA (GINKGO BILOBA) [Concomitant]
  42. FISH OIL (FISH OIL) [Concomitant]
  43. GLUCOSAMINE + CHONDROITIN [Concomitant]
  44. CALCIUM (CALCIUM) [Concomitant]
  45. VITAMIN D2 (ERGOCALCIFEROL) [Concomitant]

REACTIONS (22)
  - Atypical femur fracture [None]
  - Bone disorder [None]
  - Stress fracture [None]
  - Low turnover osteopathy [None]
  - Pain in extremity [None]
  - Pathological fracture [None]
  - Osteoporosis [None]
  - Fall [None]
  - Dyspepsia [None]
  - Osteoarthritis [None]
  - Osteoporosis [None]
  - Condition aggravated [None]
  - Intervertebral disc degeneration [None]
  - Gastrooesophageal reflux disease [None]
  - Pneumonia [None]
  - Vulvar dysplasia [None]
  - Intermittent claudication [None]
  - Meniscus injury [None]
  - Tendonitis [None]
  - Ovarian cyst [None]
  - Osteoarthritis [None]
  - Foot fracture [None]
